FAERS Safety Report 8075766-2 (Version None)
Quarter: 2012Q1

REPORT INFORMATION
  Report Type: 
  Country: None (occurrence: None)
  Receive Date: 20120127
  Receipt Date: 20120122
  Transmission Date: 20120608
  Serious: No
  Sender: FDA-Public Use
  Company Number: US-TEVA-318077USA

PATIENT
  Sex: Female
  Weight: 77.18 kg

DRUGS (2)
  1. PLAN B ONE-STEP [Suspect]
     Indication: POST COITAL CONTRACEPTION
     Dosage: 1.5 MILLIGRAM;
     Route: 048
     Dates: start: 20110101, end: 20110101
  2. NAPROXEN [Concomitant]
     Indication: MIGRAINE

REACTIONS (8)
  - ABDOMINAL DISTENSION [None]
  - NAUSEA [None]
  - CONSTIPATION [None]
  - SOMNOLENCE [None]
  - BACK PAIN [None]
  - BREAST TENDERNESS [None]
  - POLLAKIURIA [None]
  - MENSTRUATION DELAYED [None]
